FAERS Safety Report 16129377 (Version 1)
Quarter: 2019Q1

REPORT INFORMATION
  Report Type: Spontaneous
  Country: US (occurrence: US)
  Receive Date: 20190328
  Receipt Date: 20190328
  Transmission Date: 20190418
  Serious: No
  Sender: FDA-Public Use
  Company Number: US-ASTRAZENECA-2019SE38906

PATIENT
  Age: 733 Month
  Sex: Female
  Weight: 81.6 kg

DRUGS (2)
  1. MONTELUKAST [Concomitant]
     Active Substance: MONTELUKAST SODIUM
     Indication: MULTIPLE ALLERGIES
     Route: 048
     Dates: start: 2018
  2. SYMBICORT [Suspect]
     Active Substance: BUDESONIDE\FORMOTEROL FUMARATE DIHYDRATE
     Indication: ASTHMA
     Dosage: 160/4.5 MCGS, 2 PUFFS TWICE DAILY
     Route: 055
     Dates: start: 2006

REACTIONS (6)
  - Wrong technique in product usage process [Unknown]
  - Off label use of device [Unknown]
  - Nausea [Unknown]
  - Anxiety [Unknown]
  - Device failure [Unknown]
  - Feeling abnormal [Unknown]

NARRATIVE: CASE EVENT DATE: 201903
